FAERS Safety Report 6534205-0 (Version None)
Quarter: 2009Q4

REPORT INFORMATION
  Report Type: 
  Country: None (occurrence: None)
  Receive Date: 20091214
  Receipt Date: 20090729
  Transmission Date: 20100525
  Serious: Yes (Other)
  Sender: FDA-Public Use
  Company Number: 449794

PATIENT
  Age: 74 Year
  Sex: Male

DRUGS (5)
  1. PEGASYS [Suspect]
     Indication: HEPATITIS C
     Dosage: 180 MCG 1 PER WEEK OTHER
     Route: 050
     Dates: start: 20060111, end: 20060621
  2. COPEGUS [Suspect]
     Indication: HEPATITIS C
     Dosage: 4 DOSE FORM DAILY ORAL
     Route: 048
     Dates: start: 20060111, end: 20060621
  3. PREVACID [Concomitant]
  4. PRILOSEC [Concomitant]
  5. DIOVAN HCT [Concomitant]

REACTIONS (3)
  - DECREASED APPETITE [None]
  - IRRITABLE BOWEL SYNDROME [None]
  - WHITE BLOOD CELL COUNT DECREASED [None]
